FAERS Safety Report 5809559-0 (Version None)
Quarter: 2008Q3

REPORT INFORMATION
  Report Type: 
  Country: None (occurrence: None)
  Receive Date: 20080708
  Receipt Date: 20080305
  Transmission Date: 20090109
  Serious: Yes (Death)
  Sender: FDA-Public Use
  Company Number: M-08-0209

PATIENT
  Age: 69 Year
  Sex: Male

DRUGS (12)
  1. PACERONE [Suspect]
     Indication: ARRHYTHMIA
     Dosage: 200 MG, Q8H, PO TITRATED UP TO 800 MG DAILY AT THE TIME OF THE INITIAL REPORT
     Route: 048
     Dates: start: 20080229
  2. AMIODARONE HCL [Suspect]
     Indication: ARRHYTHMIA
     Dosage: 150 MG, BOLUS DOSE FOLLOWED BY AN ADDITIONAL 900 MG, IV
     Route: 040
     Dates: start: 20080228
  3. LOPRESSOR [Concomitant]
  4. ASPIRIN [Concomitant]
  5. DULCOLAX [Concomitant]
  6. ALBUTEROL [Concomitant]
  7. ATROVENT [Concomitant]
  8. SINGULAIR [Concomitant]
  9. NITROGLYCERIN CREAM [Concomitant]
  10. PROTONIX [Concomitant]
  11. DIPRIVAN [Concomitant]
  12. ZOCOR [Concomitant]

REACTIONS (3)
  - ALANINE AMINOTRANSFERASE INCREASED [None]
  - ASPARTATE AMINOTRANSFERASE INCREASED [None]
  - RASH [None]
